FAERS Safety Report 8347762 (Version 8)
Quarter: 2013Q3

REPORT INFORMATION
  Report Type: Report from Study
  Country: CA (occurrence: CA)
  Receive Date: 20120122
  Receipt Date: 20130822
  Transmission Date: 20140515
  Serious: Yes (Hospitalization, Other)
  Sender: FDA-Public Use
  Company Number: PHHY2012CA003613

PATIENT
  Sex: Male

DRUGS (4)
  1. GILENYA [Suspect]
     Indication: RELAPSING-REMITTING MULTIPLE SCLEROSIS
     Dosage: 0.5 MG, QD
     Route: 048
     Dates: start: 20111028, end: 201201
  2. GILENYA [Suspect]
     Dosage: 0.5 MG, QD
     Route: 048
     Dates: start: 20121109
  3. NEURONTIN [Concomitant]
  4. LYRICA [Concomitant]

REACTIONS (15)
  - Thrombophlebitis superficial [Unknown]
  - Ecchymosis [Unknown]
  - Osteitis [Unknown]
  - Neuropathic ulcer [Unknown]
  - Haemorrhoids [Unknown]
  - Delirium [Unknown]
  - Osteoarthritis [Unknown]
  - Wound necrosis [Unknown]
  - Hypokalaemia [Unknown]
  - Decubitus ulcer [Unknown]
  - Osteomyelitis [Recovered/Resolved]
  - Clostridium difficile colitis [Recovered/Resolved]
  - Fungal skin infection [Unknown]
  - Urinary tract infection [Recovering/Resolving]
  - Pyrexia [Recovering/Resolving]
